FAERS Safety Report 8603913-X (Version None)
Quarter: 2012Q3

REPORT INFORMATION
  Report Type: 
  Country: None (occurrence: None)
  Receive Date: 20120820
  Receipt Date: 20120810
  Transmission Date: 20120928
  Serious: Yes (Other)
  Sender: FDA-Public Use
  Company Number: CO-AMGEN-COLSP2012051463

PATIENT
  Age: 61 Year
  Sex: Female

DRUGS (8)
  1. METHOTREXATE [Suspect]
     Indication: RHEUMATOID ARTHRITIS
     Dosage: UNK
     Dates: start: 20020101, end: 20120601
  2. ALENDRONATE SODIUM [Concomitant]
     Indication: OSTEOPOROSIS
     Dosage: 70 MG, WEEKLY
     Route: 048
     Dates: start: 20100101
  3. SULFASALAZINE [Concomitant]
     Dosage: 500 MG, UNK
  4. ENBREL [Suspect]
     Indication: RHEUMATOID ARTHRITIS
     Dosage: 50 MG, WEEKLY
     Route: 058
     Dates: start: 20090101
  5. PREDNISOLONE [Concomitant]
     Dosage: 5 MG, UNK
  6. DOLEX                              /01495801/ [Concomitant]
     Dosage: UNK
  7. DOXEPIN [Concomitant]
     Indication: DEPRESSION
     Dosage: 50 MG, AS NEEDED
     Route: 048
  8. NAPROXEN [Concomitant]
     Dosage: 250 MG, UNK

REACTIONS (2)
  - HEPATIC ENZYME ABNORMAL [None]
  - KERATITIS [None]
